FAERS Safety Report 10432539 (Version 2)
Quarter: 2014Q3

REPORT INFORMATION
  Report Type: Report from Study
  Country: CA (occurrence: CA)
  Receive Date: 20140905
  Receipt Date: 20140905
  Transmission Date: 20150326
  Serious: Yes (Other)
  Sender: FDA-Public Use
  Company Number: CA-JNJFOC-20140705259

PATIENT
  Age: 43 Year
  Sex: Male
  Weight: 77 kg

DRUGS (6)
  1. IRON [Concomitant]
     Active Substance: IRON
     Route: 065
  2. SALOFALK [Concomitant]
     Active Substance: MESALAMINE
     Route: 065
  3. REMICADE [Suspect]
     Active Substance: INFLIXIMAB
     Indication: CROHN^S DISEASE
     Route: 042
     Dates: start: 20130925
  4. REMICADE [Suspect]
     Active Substance: INFLIXIMAB
     Indication: CROHN^S DISEASE
     Dosage: 7TH INFLIXIMAB INFUSION. 8TH INFUSION TODAY
     Route: 042
     Dates: start: 20140902
  5. MODULEN [Concomitant]
     Route: 065
  6. REMICADE [Suspect]
     Active Substance: INFLIXIMAB
     Indication: CROHN^S DISEASE
     Dosage: 7TH INFLIXIMAB INFUSION
     Route: 042
     Dates: start: 20140707

REACTIONS (2)
  - Keratomileusis [Recovered/Resolved]
  - Hepatic mass [Unknown]

NARRATIVE: CASE EVENT DATE: 20140627
